FAERS Safety Report 8314110-X (Version None)
Quarter: 2012Q2

REPORT INFORMATION
  Report Type: 
  Country: None (occurrence: None)
  Receive Date: 20120426
  Receipt Date: 20120330
  Transmission Date: 20120825
  Serious: Yes (Other)
  Sender: FDA-Public Use
  Company Number: DE-B.I. PHARMACEUTICALS,INC./RIDGEFIELD-2012-DE-00918DE

PATIENT
  Sex: Male
  Weight: 74 kg

DRUGS (9)
  1. METFORMIN HCL [Concomitant]
     Indication: DIABETES MELLITUS
     Dosage: 2*50/1000
     Route: 048
  2. LYRICA [Concomitant]
     Indication: NEUROPATHY PERIPHERAL
     Dosage: 150 MG
     Route: 048
  3. LANTUS [Concomitant]
     Dosage: 44 U
     Route: 058
  4. PRADAXA [Suspect]
     Indication: ATRIAL FIBRILLATION
     Dosage: 220 MG
     Route: 048
     Dates: start: 20120214, end: 20120326
  5. SPASMEX [Concomitant]
     Dosage: 45 MG
  6. TAMSULOSIN HCL [Concomitant]
     Indication: BENIGN PROSTATIC HYPERPLASIA
     Dosage: 0.4 MG
     Route: 048
  7. FLUVASTATIN [Concomitant]
     Dosage: 40 MG
  8. MOBLOC [Concomitant]
     Indication: HYPERTENSION
     Route: 048
  9. METFORMIN HCL [Concomitant]
     Dosage: 1000 MG

REACTIONS (1)
  - OEDEMA PERIPHERAL [None]
